FAERS Safety Report 24286466 (Version 1)
Quarter: 2024Q3

REPORT INFORMATION
  Report Type: Spontaneous
  Country: US (occurrence: None)
  Receive Date: 20240903
  Receipt Date: 20240903
  Transmission Date: 20241017
  Serious: Yes (Hospitalization)
  Sender: Public
  Company Number: None

PATIENT
  Sex: Female

DRUGS (1)
  1. CAPECITABINE [Suspect]
     Active Substance: CAPECITABINE
     Indication: Breast cancer female
     Dosage: OTHER FREQUENCY : 2 TIMES A DAY ON DAYS1 TO 14 OF A 21DAY CYCLE.;?
     Route: 048
     Dates: start: 202404

REACTIONS (1)
  - Adrenal insufficiency [None]
